FAERS Safety Report 23912736 (Version 4)
Quarter: 2024Q4

REPORT INFORMATION
  Report Type: Spontaneous
  Country: US (occurrence: US)
  Receive Date: 20240529
  Receipt Date: 20241127
  Transmission Date: 20250115
  Serious: Yes (Other)
  Sender: TOLMAR
  Company Number: US-TOLMAR, INC.-24US049589

PATIENT
  Sex: Female

DRUGS (3)
  1. FENSOLVI [Suspect]
     Active Substance: LEUPROLIDE ACETATE
     Indication: Precocious puberty
     Dosage: 45 MILLIGRAM, Q 6 MONTH
     Route: 058
     Dates: start: 20231215, end: 20240524
  2. FENSOLVI [Suspect]
     Active Substance: LEUPROLIDE ACETATE
     Dosage: 45 MILLIGRAM, Q 6 MONTH
     Route: 058
     Dates: start: 20230612
  3. DEVICE [Suspect]
     Active Substance: DEVICE
     Indication: Precocious puberty
     Dosage: UNK

REACTIONS (1)
  - Epiphyses premature fusion [Unknown]
